FAERS Safety Report 4288117-6 (Version None)
Quarter: 2004Q1

REPORT INFORMATION
  Report Type: 
  Country: None (occurrence: None)
  Receive Date: 20040209
  Receipt Date: 20030820
  Transmission Date: 20041129
  Serious: No
  Sender: FDA-Public Use
  Company Number: US-GLAXOSMITHKLINE-A0422725A

PATIENT
  Age: 44 Year
  Sex: Male

DRUGS (2)
  1. PAXIL [Suspect]
     Indication: PANIC DISORDER
     Dosage: 40MG PER DAY
     Route: 048
     Dates: start: 20021201
  2. PAXIL [Suspect]
     Dosage: 50MG PER DAY
     Route: 048
     Dates: start: 20030401, end: 20030401

REACTIONS (3)
  - CONSTIPATION [None]
  - PANIC ATTACK [None]
  - WEIGHT INCREASED [None]
